FAERS Safety Report 7436222-5 (Version None)
Quarter: 2011Q2

REPORT INFORMATION
  Report Type: 
  Country: None (occurrence: None)
  Receive Date: 20110425
  Receipt Date: 20110411
  Transmission Date: 20111010
  Serious: Yes (Death, Hospitalization)
  Sender: FDA-Public Use
  Company Number: DE-GENENTECH-315101

PATIENT
  Sex: Male

DRUGS (2)
  1. ANTIHYPERTENSIVE MEDICATION NOS [Concomitant]
     Indication: HYPERTENSION
     Dosage: UNK
  2. LUCENTIS [Suspect]
     Indication: DIABETIC RETINOPATHY
     Dosage: UNK
     Route: 031
     Dates: start: 20110210

REACTIONS (1)
  - CEREBROVASCULAR ACCIDENT [None]
